FAERS Safety Report 5177440-9 (Version None)
Quarter: 2006Q4

REPORT INFORMATION
  Report Type: 
  Country: None (occurrence: None)
  Receive Date: 20061207
  Receipt Date: 20061129
  Transmission Date: 20070319
  Serious: Yes (Hospitalization)
  Sender: FDA-Public Use
  Company Number: 2006136240

PATIENT
  Age: 17 Year
  Sex: Male
  Weight: 93.1235 kg

DRUGS (2)
  1. ZIPRASIDONE HCL [Suspect]
     Indication: SCHIZOPHRENIA
     Dosage: 140 MG (70 MG, 2 IN 1 D), ORAL
     Route: 048
     Dates: start: 20050127, end: 20050307
  2. PROZAC [Concomitant]

REACTIONS (5)
  - FAMILY STRESS [None]
  - PARANOIA [None]
  - PSYCHOTIC DISORDER [None]
  - SUICIDAL IDEATION [None]
  - TREATMENT NONCOMPLIANCE [None]
